FAERS Safety Report 13603362 (Version 4)
Quarter: 2018Q2

REPORT INFORMATION
  Report Type: Report from Study
  Country: US (occurrence: US)
  Receive Date: 20170601
  Receipt Date: 20180410
  Transmission Date: 20180711
  Serious: Yes (Hospitalization)
  Sender: FDA-Public Use
  Company Number: US-OTSUKA-2017_004154

PATIENT
  Sex: Male

DRUGS (3)
  1. KLONOPIN [Concomitant]
     Active Substance: CLONAZEPAM
     Indication: PRODUCT USED FOR UNKNOWN INDICATION
     Dosage: UNK
     Route: 065
  2. TOLVAPTAN [Suspect]
     Active Substance: TOLVAPTAN
     Indication: HYPONATRAEMIA
  3. TOLVAPTAN [Suspect]
     Active Substance: TOLVAPTAN
     Indication: BLOOD OSMOLARITY DECREASED
     Dosage: 30 MG, QD
     Route: 048
     Dates: start: 20160201

REACTIONS (8)
  - Gait disturbance [Unknown]
  - Mental disorder [Unknown]
  - Arthropathy [Unknown]
  - Headache [Unknown]
  - Feeling abnormal [Unknown]
  - Drug dose omission [Unknown]
  - Asthenia [Unknown]
  - Peripheral coldness [Unknown]
